FAERS Safety Report 15833655 (Version 3)
Quarter: 2019Q1

REPORT INFORMATION
  Report Type: Spontaneous
  Country: DE (occurrence: DE)
  Receive Date: 20190116
  Receipt Date: 20190122
  Transmission Date: 20190417
  Serious: Yes (Other)
  Sender: FDA-Public Use
  Company Number: DE-PFIZER INC-2019018932

PATIENT
  Age: 65 Year
  Sex: Female
  Weight: 61 kg

DRUGS (8)
  1. EPIRUBICIN HCL [Suspect]
     Active Substance: EPIRUBICIN HYDROCHLORIDE
     Indication: BREAST CANCER
     Dosage: 158 MG CYCLIC (FOUR CYCLES, 75 MG/QM KOF, INFUSION TIME OF 1.5 HOURS)
     Route: 042
     Dates: start: 20180928, end: 20181130
  2. NEULASTA [Suspect]
     Active Substance: PEGFILGRASTIM
     Dosage: RECEIVED AFTER 27 HOURS OF CHEMOTHERAPY
     Route: 058
     Dates: start: 201809
  3. UROMITEXAN [Suspect]
     Active Substance: MESNA
     Dosage: TABLETS, 4 HOURS AND 8 HOURS AFTER CHEMOTHERAPY
     Dates: start: 201809
  4. AKYNZEO [Suspect]
     Active Substance: NETUPITANT\PALONOSETRON HYDROCHLORIDE
     Dosage: RECEIVED AFTER 27 HOURS OF CHEMOTHERAPY
     Dates: start: 201809
  5. PANTOPRAZOLE [Suspect]
     Active Substance: PANTOPRAZOLE
     Dosage: RECEIVED BEFORE CHEMOTHERAPY
  6. UROMITEXAN [Suspect]
     Active Substance: MESNA
     Dosage: 400 MG, UNK
     Route: 042
     Dates: start: 20180928
  7. DEXAMETHASONE. [Suspect]
     Active Substance: DEXAMETHASONE
     Dosage: 16 MG, UNK
     Route: 042
     Dates: start: 20180928
  8. ENDOXAN [Suspect]
     Active Substance: CYCLOPHOSPHAMIDE
     Indication: BREAST CANCER
     Dosage: 1053 MG, CYCLIC (FOUR CYCLES, 500 MG/QM KOF, INFUSION TIME OF 1.5 HOURS)
     Route: 042
     Dates: start: 20180928, end: 20181130

REACTIONS (17)
  - Asthenia [Unknown]
  - Mucosal inflammation [Unknown]
  - Weight decreased [Unknown]
  - Tachycardia [Unknown]
  - Mental disorder [Unknown]
  - Gastric disorder [Not Recovered/Not Resolved]
  - Hypotension [Unknown]
  - Nausea [Unknown]
  - Fluid intake reduced [Unknown]
  - Mobility decreased [Unknown]
  - Cardiovascular disorder [Unknown]
  - Decreased appetite [Unknown]
  - Abdominal discomfort [Not Recovered/Not Resolved]
  - Dysgeusia [Unknown]
  - Fatigue [Unknown]
  - Dyspnoea [Unknown]
  - Bone pain [Unknown]
